FAERS Safety Report 6947064-9 (Version None)
Quarter: 2010Q3

REPORT INFORMATION
  Report Type: 
  Country: None (occurrence: None)
  Receive Date: 20100827
  Receipt Date: 20090901
  Transmission Date: 20110219
  Serious: No
  Sender: FDA-Public Use
  Company Number: US-ABBOTT-09P-163-0594660-00

PATIENT
  Sex: Male

DRUGS (8)
  1. NIASPAN [Suspect]
     Indication: BLOOD CHOLESTEROL INCREASED
     Dosage: IN MORNING
     Route: 048
     Dates: start: 20090828
  2. NIASPAN [Suspect]
     Indication: HIGH DENSITY LIPOPROTEIN DECREASED
  3. NIASPAN [Suspect]
     Indication: BLOOD TRIGLYCERIDES INCREASED
  4. ASPIRIN [Concomitant]
     Indication: PRODUCT USED FOR UNKNOWN INDICATION
     Dosage: DAILY
     Route: 048
  5. LOVAZA [Concomitant]
     Indication: PRODUCT USED FOR UNKNOWN INDICATION
     Dosage: DAILY
     Route: 048
  6. LISINOPRIL [Concomitant]
     Indication: PRODUCT USED FOR UNKNOWN INDICATION
     Dosage: 25/20
     Route: 048
  7. ALEVE (CAPLET) [Concomitant]
     Indication: PRODUCT USED FOR UNKNOWN INDICATION
     Route: 048
  8. ZANAFLEX [Concomitant]
     Indication: PRODUCT USED FOR UNKNOWN INDICATION
     Route: 048

REACTIONS (1)
  - PRURITUS [None]
